FAERS Safety Report 5415980-5 (Version None)
Quarter: 2007Q3

REPORT INFORMATION
  Report Type: 
  Country: None (occurrence: None)
  Receive Date: 20070815
  Receipt Date: 20070806
  Transmission Date: 20080115
  Serious: Yes (Other)
  Sender: FDA-Public Use
  Company Number: US-PFIZER INC-2007065746

PATIENT
  Sex: Male
  Weight: 65.8 kg

DRUGS (5)
  1. VIAGRA [Suspect]
     Route: 048
  2. LAMICTAL [Interacting]
     Route: 048
     Dates: start: 20031104
  3. ZONISAMIDE [Concomitant]
  4. CLONAZEPAM [Concomitant]
  5. METOCLOPRAMIDE [Concomitant]

REACTIONS (5)
  - BLOOD BICARBONATE DECREASED [None]
  - CONVULSION [None]
  - DRUG DOSE OMISSION [None]
  - DRUG INTERACTION [None]
  - DRUG LEVEL DECREASED [None]
